FAERS Safety Report 4990761-5 (Version None)
Quarter: 2006Q2

REPORT INFORMATION
  Report Type: 
  Country: None (occurrence: None)
  Receive Date: 20060428
  Receipt Date: 20060411
  Transmission Date: 20061013
  Serious: Yes (Hospitalization)
  Sender: FDA-Public Use
  Company Number: ES200604001852

PATIENT
  Age: 60 Year
  Sex: Female

DRUGS (9)
  1. FORTEO [Suspect]
     Indication: OSTEOPOROSIS
     Dosage: 20 UG, SUBCUTANEOUS
     Route: 058
     Dates: end: 20060410
  2. FORTEO [Concomitant]
  3. MIRAPEXIN (PRAMIPEXOLE DIHYDROCHLORIDE) [Concomitant]
  4. VORICONAZOLE (VORICONAZOLE) [Concomitant]
  5. CEFTAZIDIME (CEFTAZIDIME) [Concomitant]
  6. CORTICOSTEROIDS [Concomitant]
  7. PREDNISONE TAB [Concomitant]
  8. LEXATIN (BROMAZEPAM) [Concomitant]
  9. CALCIUM (CALCIUM) [Concomitant]

REACTIONS (3)
  - DISCOMFORT [None]
  - HYPOTENSION [None]
  - SYNCOPE [None]
